FAERS Safety Report 7082666-3 (Version None)
Quarter: 2010Q4

REPORT INFORMATION
  Report Type: 
  Country: None (occurrence: None)
  Receive Date: 20101026
  Receipt Date: 20101011
  Transmission Date: 20110411
  Serious: Yes (Other)
  Sender: FDA-Public Use
  Company Number: 1000013919

PATIENT
  Age: 52 Year
  Sex: Male

DRUGS (9)
  1. NEBIVOLOL HCL [Suspect]
     Indication: CARDIAC FAILURE
     Dosage: 7.5 MG (7.5 MG, 1 IN 1 D), ORAL
     Route: 048
     Dates: start: 20100319, end: 20100408
  2. BISOPROLOL FUMARATE [Suspect]
     Indication: CARDIAC FAILURE
     Dosage: ORAL
     Route: 048
     Dates: end: 20100316
  3. BISOPROLOL FUMARATE [Suspect]
     Indication: CARDIAC FAILURE
     Dosage: 10 MG (10 MG, 1 IN 1 D), ORAL
     Route: 048
     Dates: start: 20100317, end: 20100319
  4. SPIRONOLACTONE [Concomitant]
  5. RAMIPRIL [Concomitant]
  6. GLYCERYL TRINITRATE (GLYCERYL TRINITRATE) (GLYCERYL TRINITRATE) [Concomitant]
  7. FUROSEMIDE [Concomitant]
  8. ATORVASTATIN (ATORVASTATIN) (ATORVASTATIN) [Concomitant]
  9. ASPIRIN [Concomitant]

REACTIONS (3)
  - PERIPHERAL COLDNESS [None]
  - RENAL IMPAIRMENT [None]
  - SKIN DISCOLOURATION [None]
